FAERS Safety Report 23240319 (Version 1)
Quarter: 2023Q4

REPORT INFORMATION
  Report Type: Spontaneous
  Country: US (occurrence: US)
  Receive Date: 20231129
  Receipt Date: 20231129
  Transmission Date: 20240110
  Serious: No
  Sender: FDA-Public Use
  Company Number: US-SLATERUN-2023SRSPO00012

PATIENT
  Age: 84 Year
  Sex: Female
  Weight: 180 kg

DRUGS (2)
  1. ARFORMOTEROL TARTRATE INHALATION SOLUTION [Suspect]
     Active Substance: ARFORMOTEROL TARTRATE
     Indication: Emphysema
     Dosage: (MORNING AND EVENING) IN A NEBULIZER
     Dates: start: 202308
  2. VIATRAN [Concomitant]
     Indication: Product used for unknown indication
     Route: 065

REACTIONS (3)
  - Drug ineffective [Unknown]
  - Product packaging issue [Unknown]
  - Product substitution issue [Unknown]
